FAERS Safety Report 4517327-5 (Version None)
Quarter: 2005Q1

REPORT INFORMATION
  Report Type: 
  Country: None (occurrence: None)
  Receive Date: 20041007
  Receipt Date: 20040226
  Transmission Date: 20050727
  Serious: Yes (Other)
  Sender: FDA-Public Use
  Company Number: 2004-02-1992

PATIENT
  Age: 68 Year
  Sex: Female

DRUGS (2)
  1. TEMODAR [Suspect]
     Indication: BRAIN NEOPLASM
     Dosage: 75 MG/M^2 QD ORAL
     Route: 048
  2. RADIATION THERAPY [Suspect]
     Indication: BRAIN NEOPLASM
     Dosage: X-RAY THERAPY

REACTIONS (1)
  - PANCYTOPENIA [None]
